FAERS Safety Report 8908013 (Version 1)
Quarter: 2012Q4

REPORT INFORMATION
  Report Type: 
  Country: JP (occurrence: JP)
  Receive Date: 20121113
  Receipt Date: 20121113
  Transmission Date: 20130627
  Serious: Yes (Hospitalization)
  Sender: FDA-Public Use
  Company Number: JP-009507513-2012SP032693

PATIENT
  Age: 52 Year
  Sex: Male
  Weight: 69 kg

DRUGS (7)
  1. PEGINTERFERON ALFA-2B [Suspect]
     Indication: HEPATITIS C
     Dosage: 1.5 ?g/kg, QW
     Route: 058
     Dates: start: 20120222, end: 20120501
  2. REBETOL [Suspect]
     Indication: HEPATITIS C
     Dosage: 800 mg, QD
     Route: 048
     Dates: start: 20120222, end: 20120228
  3. REBETOL [Suspect]
     Dosage: 400 mg, QD
     Route: 048
     Dates: start: 20120229, end: 20120403
  4. REBETOL [Suspect]
     Dosage: 600 mg, QD
     Route: 048
     Dates: start: 20120404, end: 20120508
  5. TELAVIC [Suspect]
     Indication: HEPATITIS C
     Dosage: 2250 mg, QD
     Route: 048
     Dates: start: 20120222, end: 20120508
  6. LOXOPROFEN [Concomitant]
     Indication: PROPHYLAXIS
     Dosage: CUMULATIVE DOSE: 960MG, FORMULATION: POR
     Route: 048
     Dates: start: 20120222, end: 20120401
  7. FAMOTIDINE [Concomitant]
     Indication: PROPHYLAXIS
     Dosage: CUMULATIVE DOSE: 320MG, FORMULATION: POR
     Route: 048
     Dates: start: 20120222, end: 20120401

REACTIONS (1)
  - Pneumonia [Recovering/Resolving]
